FAERS Safety Report 18164883 (Version 2)
Quarter: 2020Q3

REPORT INFORMATION
  Report Type: Report from Study
  Country: US (occurrence: US)
  Receive Date: 20200818
  Receipt Date: 20200915
  Transmission Date: 20201103
  Serious: Yes (Hospitalization, Other)
  Sender: FDA-Public Use
  Company Number: US-SHIRE-US202026264

PATIENT
  Age: 67 Year
  Sex: Female
  Weight: 64.99 kg

DRUGS (12)
  1. GATTEX [Suspect]
     Active Substance: TEDUGLUTIDE\WATER
     Indication: MALABSORPTION
  2. GATTEX [Suspect]
     Active Substance: TEDUGLUTIDE\WATER
     Indication: MALABSORPTION
  3. GATTEX [Suspect]
     Active Substance: TEDUGLUTIDE\WATER
     Indication: SHORT-BOWEL SYNDROME
     Dosage: 0.325 UNIT UNKNOWN, 1X/DAY:QD
     Route: 058
     Dates: start: 20190320
  4. GATTEX [Suspect]
     Active Substance: TEDUGLUTIDE\WATER
     Indication: DIARRHOEA
     Dosage: 0.261 MILLILITER, 1X/DAY:QD
     Route: 058
  5. GATTEX [Suspect]
     Active Substance: TEDUGLUTIDE\WATER
     Indication: SHORT-BOWEL SYNDROME
     Dosage: 0.325 UNIT UNKNOWN, 1X/DAY:QD
     Route: 058
     Dates: start: 20190320
  6. GATTEX [Suspect]
     Active Substance: TEDUGLUTIDE\WATER
     Indication: DIARRHOEA
     Dosage: 0.261 MILLILITER, 1X/DAY:QD
     Route: 058
  7. GATTEX [Suspect]
     Active Substance: TEDUGLUTIDE\WATER
     Indication: DIARRHOEA
     Dosage: 0.261 MILLILITER, 1X/DAY:QD
     Route: 058
  8. GATTEX [Suspect]
     Active Substance: TEDUGLUTIDE\WATER
     Indication: DIARRHOEA
     Dosage: 0.261 MILLILITER, 1X/DAY:QD
     Route: 058
  9. GATTEX [Suspect]
     Active Substance: TEDUGLUTIDE\WATER
     Indication: SHORT-BOWEL SYNDROME
     Dosage: 0.325 UNIT UNKNOWN, 1X/DAY:QD
     Route: 058
     Dates: start: 20190320
  10. GATTEX [Suspect]
     Active Substance: TEDUGLUTIDE\WATER
     Indication: MALABSORPTION
  11. GATTEX [Suspect]
     Active Substance: TEDUGLUTIDE\WATER
     Indication: SHORT-BOWEL SYNDROME
     Dosage: 0.325 UNIT UNKNOWN, 1X/DAY:QD
     Route: 058
     Dates: start: 20190320
  12. GATTEX [Suspect]
     Active Substance: TEDUGLUTIDE\WATER
     Indication: MALABSORPTION

REACTIONS (2)
  - Intestinal obstruction [Recovered/Resolved]
  - Diarrhoea [Not Recovered/Not Resolved]

NARRATIVE: CASE EVENT DATE: 20200727
